FAERS Safety Report 5880429-5 (Version None)
Quarter: 2008Q3

REPORT INFORMATION
  Report Type: 
  Country: None (occurrence: None)
  Receive Date: 20080912
  Receipt Date: 20080812
  Transmission Date: 20090109
  Serious: No
  Sender: FDA-Public Use
  Company Number: PR-ABBOTT-08P-131-0470744-00

PATIENT
  Sex: Female
  Weight: 78.996 kg

DRUGS (3)
  1. HUMIRA [Suspect]
     Indication: RHEUMATOID ARTHRITIS
     Route: 058
     Dates: start: 20080729, end: 20080731
  2. ISOSORBIDE DINITRATE [Concomitant]
     Indication: ANGINA PECTORIS
     Route: 048
  3. PRIMIDONE [Concomitant]
     Indication: EPILEPSY
     Route: 048

REACTIONS (4)
  - FATIGUE [None]
  - OCULAR ICTERUS [None]
  - SOMNOLENCE [None]
  - TACHYCARDIA [None]
